FAERS Safety Report 17163064 (Version 1)
Quarter: 2019Q4

REPORT INFORMATION
  Report Type: Spontaneous
  Country: IT (occurrence: IT)
  Receive Date: 20191217
  Receipt Date: 20191217
  Transmission Date: 20200122
  Serious: Yes (Hospitalization, Other)
  Sender: FDA-Public Use
  Company Number: IT-GLAXOSMITHKLINE-IT2019227880

PATIENT
  Age: 44 Year
  Sex: Male

DRUGS (2)
  1. VOLTFAST [Suspect]
     Active Substance: DICLOFENAC
     Indication: BACK PAIN
     Dosage: 100 MG, QD
     Route: 048
     Dates: start: 20191007, end: 20191013
  2. SANDIMMUN NEORAL [Suspect]
     Active Substance: CYCLOSPORINE
     Indication: ORGAN TRANSPLANT
     Dosage: 300 MG, QD
     Route: 048
     Dates: start: 20180901, end: 20191013

REACTIONS (3)
  - Duodenal ulcer [Not Recovered/Not Resolved]
  - Haematemesis [Not Recovered/Not Resolved]
  - Gastric ulcer [Not Recovered/Not Resolved]

NARRATIVE: CASE EVENT DATE: 20191013
